FAERS Safety Report 25858732 (Version 1)
Quarter: 2025Q3

REPORT INFORMATION
  Report Type: Spontaneous
  Country: US (occurrence: None)
  Receive Date: 20250927
  Receipt Date: 20250927
  Transmission Date: 20251021
  Serious: Yes (Hospitalization)
  Sender: FDA-CTU
  Company Number: None

PATIENT
  Age: 47 Year
  Sex: Male
  Weight: 85.5 kg

DRUGS (9)
  1. CYCLOPHOSPHAMIDE [Suspect]
     Active Substance: CYCLOPHOSPHAMIDE
     Dates: end: 20250817
  2. CYTARABINE [Suspect]
     Active Substance: CYTARABINE
     Dates: end: 20250912
  3. SPRYCEL [Suspect]
     Active Substance: DASATINIB
     Dates: end: 20250725
  4. DEXAMETHASONE [Suspect]
     Active Substance: DEXAMETHASONE
     Dates: end: 20250825
  5. DOXORUBICIN HYDROCHLORIDE [Suspect]
     Active Substance: DOXORUBICIN HYDROCHLORIDE
     Dates: end: 20250817
  6. MESNA [Suspect]
     Active Substance: MESNA
  7. METHOTREXATE [Suspect]
     Active Substance: METHOTREXATE
     Dates: end: 20250827
  8. PONATINIB [Suspect]
     Active Substance: PONATINIB
     Dates: end: 20250914
  9. PREDNISONE [Suspect]
     Active Substance: PREDNISONE
     Dates: end: 20250817

REACTIONS (3)
  - Subdural haematoma [None]
  - Pyrexia [None]
  - Neutropenia [None]

NARRATIVE: CASE EVENT DATE: 20250915
